FAERS Safety Report 13830838 (Version 1)
Quarter: 2017Q3

REPORT INFORMATION
  Report Type: Report from Study
  Country: US (occurrence: US)
  Receive Date: 20170803
  Receipt Date: 20170803
  Transmission Date: 20171127
  Serious: Yes (Other)
  Sender: FDA-Public Use
  Company Number: US-NAPPMUNDI-USA-2017-0140075

PATIENT
  Sex: Female

DRUGS (2)
  1. OXYCODONE HYDROCHLORIDE. [Suspect]
     Active Substance: OXYCODONE HYDROCHLORIDE
     Indication: PAIN
  2. OXYCODONE HYDROCHLORIDE. [Suspect]
     Active Substance: OXYCODONE HYDROCHLORIDE
     Indication: BACK PAIN
     Dosage: 40 MG, BID
     Route: 048
     Dates: start: 20141212

REACTIONS (6)
  - Neuritis [Unknown]
  - Ligament sprain [Unknown]
  - Lumbar radiculopathy [Unknown]
  - Spinal osteoarthritis [Unknown]
  - Fibromyalgia [Unknown]
  - Arthralgia [Unknown]
